FAERS Safety Report 7874945-4 (Version None)
Quarter: 2011Q4

REPORT INFORMATION
  Report Type: 
  Country: None (occurrence: None)
  Receive Date: 20111003
  Receipt Date: 20110718
  Transmission Date: 20120403
  Serious: Yes (Other)
  Sender: FDA-Public Use
  Company Number: 290377USA

PATIENT
  Sex: Female

DRUGS (1)
  1. VENLAFAXINE [Suspect]
     Dosage: 150 MG

REACTIONS (7)
  - SUICIDAL IDEATION [None]
  - HEADACHE [None]
  - DEPRESSION [None]
  - PARANOIA [None]
  - DRUG WITHDRAWAL SYNDROME [None]
  - MEMORY IMPAIRMENT [None]
  - MAGICAL THINKING [None]
